FAERS Safety Report 17353516 (Version 2)
Quarter: 2020Q1

REPORT INFORMATION
  Report Type: Spontaneous
  Country: NL (occurrence: NL)
  Receive Date: 20200131
  Receipt Date: 20200204
  Transmission Date: 20200409
  Serious: Yes (Death, Life-Threatening, Hospitalization, Other)
  Sender: FDA-Public Use
  Company Number: NL-BAXTER-2020BAX001630

PATIENT
  Age: 48 Year
  Sex: Male

DRUGS (13)
  1. AMPHOTERICIN B. [Suspect]
     Active Substance: AMPHOTERICIN B
     Indication: INFECTION PROPHYLAXIS
     Dosage: SDD REGIMEN CONSISTING OF 2% OF POLYMYXIN B, TOBRAMYCIN AND AMPHOTERICIN B (0.5 G Q.D.S)
     Route: 065
  2. AMPHOTERICIN B. [Suspect]
     Active Substance: AMPHOTERICIN B
     Indication: PROPHYLAXIS
     Route: 042
  3. PIPERACILLIN AND TAZOBACTAM [Suspect]
     Active Substance: PIPERACILLIN SODIUM\TAZOBACTAM SODIUM
     Indication: PERITONITIS BACTERIAL
     Dosage: PIPERACILLIN 4000MG, TAZOBACTAM 500MG
     Route: 042
  4. PIPERACILLIN AND TAZOBACTAM [Suspect]
     Active Substance: PIPERACILLIN SODIUM\TAZOBACTAM SODIUM
     Indication: PROPHYLAXIS
     Dosage: PIPERACILLIN 4000MG, TAZOBACTAM 500MG
     Route: 042
  5. HYDROCORTISONE. [Suspect]
     Active Substance: HYDROCORTISONE
     Indication: IMMUNOSUPPRESSANT DRUG THERAPY
     Route: 041
  6. TOBRAMYCIN. [Suspect]
     Active Substance: TOBRAMYCIN
     Indication: INFECTION PROPHYLAXIS
     Dosage: SDD REGIMEN CONSISTING OF 2% OF POLYMYXIN B, TOBRAMYCIN AND AMPHOTERICIN B (0.5 GRAM Q.D.S.)
     Route: 065
  7. FLUCONAZOL CLARIS 2 MG/ML. OPLOSSING VOOR INFUSIE [Suspect]
     Active Substance: FLUCONAZOLE
     Indication: PROPHYLAXIS
     Route: 042
  8. MEROPENEM. [Suspect]
     Active Substance: MEROPENEM
     Indication: PERITONITIS BACTERIAL
     Route: 042
  9. BASILIXIMAB [Suspect]
     Active Substance: BASILIXIMAB
     Indication: IMMUNOSUPPRESSANT DRUG THERAPY
     Dosage: ON DAY 0 AND DAY 4 AFTER TRANSPLANTATION
     Route: 041
  10. CEFTRIAXONE. [Suspect]
     Active Substance: CEFTRIAXONE
     Indication: ESCHERICHIA PERITONITIS
     Route: 042
  11. PIPERACILLIN AND TAZOBACTAM [Suspect]
     Active Substance: PIPERACILLIN SODIUM\TAZOBACTAM SODIUM
     Indication: PERITONITIS
  12. MEROPENEM. [Suspect]
     Active Substance: MEROPENEM
     Indication: PERITONITIS
  13. POLYMYXIN B. [Suspect]
     Active Substance: POLYMYXIN B
     Indication: INFECTION PROPHYLAXIS
     Dosage: SDD REGIMEN CONSISTING OF 2% OF POLYMYXIN B, TOBRAMYCIN AND AMPHOTERICIN B (0.5 GRAM Q.D.S.)
     Route: 065

REACTIONS (5)
  - Cholangitis infective [Not Recovered/Not Resolved]
  - Multiple organ dysfunction syndrome [Fatal]
  - Trichosporon infection [Fatal]
  - Pathogen resistance [Fatal]
  - Abdominal compartment syndrome [Not Recovered/Not Resolved]
